FAERS Safety Report 8511452-X (Version None)
Quarter: 2012Q3

REPORT INFORMATION
  Report Type: 
  Country: None (occurrence: None)
  Receive Date: 20120716
  Receipt Date: 20120702
  Transmission Date: 20120928
  Serious: No
  Sender: FDA-Public Use
  Company Number: US-ASTRAZENECA-2012SE44828

PATIENT
  Sex: Female

DRUGS (2)
  1. BRILINTA [Suspect]
     Route: 048
  2. AMURODION [Concomitant]
     Indication: ATRIAL FIBRILLATION

REACTIONS (1)
  - THROMBOCYTOPENIA [None]
